FAERS Safety Report 5398617-3 (Version None)
Quarter: 2007Q3

REPORT INFORMATION
  Report Type: 
  Country: None (occurrence: None)
  Receive Date: 20070726
  Receipt Date: 20060603
  Transmission Date: 20080115
  Serious: No
  Sender: FDA-Public Use
  Company Number: US-AMGEN-KDL182120

PATIENT
  Sex: Female

DRUGS (8)
  1. PROCRIT [Suspect]
     Indication: DRUG USE FOR UNKNOWN INDICATION
     Route: 058
     Dates: start: 20050101
  2. DURAGESIC-100 [Suspect]
  3. AMPHETAMINE [Concomitant]
  4. MESTINON [Concomitant]
  5. VENLAFAXINE HCL [Concomitant]
  6. EDERAL [Concomitant]
  7. EFFEXOR [Concomitant]
  8. DESYREL [Concomitant]

REACTIONS (3)
  - COAGULATION TIME PROLONGED [None]
  - FEELING ABNORMAL [None]
  - POLLAKIURIA [None]
